FAERS Safety Report 23523848 (Version 3)
Quarter: 2025Q1

REPORT INFORMATION
  Report Type: Report from Study
  Country: US (occurrence: US)
  Receive Date: 20240214
  Receipt Date: 20250320
  Transmission Date: 20250409
  Serious: Yes (Other)
  Sender: AURINIA PHARMACEUTICALS
  Company Number: US-OTSUKA PHARMACEUTICAL NETHERLANDS B.V.-AUR-005215

PATIENT
  Age: 50 Year
  Sex: Male

DRUGS (2)
  1. LUPKYNIS [Suspect]
     Active Substance: VOCLOSPORIN
     Indication: Lupus nephritis
     Dosage: 23.7 MILLIGRAM, BID
     Route: 048
     Dates: start: 20230826
  2. LUPKYNIS [Suspect]
     Active Substance: VOCLOSPORIN
     Dosage: 23.7 MILLIGRAM, BID
     Route: 048

REACTIONS (10)
  - Proteinuria [Unknown]
  - Urine protein/creatinine ratio increased [Unknown]
  - Hypertension [Recovering/Resolving]
  - Urine abnormality [Unknown]
  - Dizziness [Unknown]
  - Haemoglobin decreased [Unknown]
  - Pain in extremity [Unknown]
  - Swelling [Unknown]
  - Hiccups [Unknown]
  - Anaemia [Unknown]

NARRATIVE: CASE EVENT DATE: 20231227
